FAERS Safety Report 12277021 (Version 1)
Quarter: 2016Q2

REPORT INFORMATION
  Report Type: Spontaneous
  Country: US (occurrence: US)
  Receive Date: 20160418
  Receipt Date: 20160418
  Transmission Date: 20160815
  Serious: No
  Sender: FDA-Public Use
  Company Number: US-WARNER CHILCOTT, LLC-1050646

PATIENT
  Age: 47 Year
  Sex: Male

DRUGS (2)
  1. PROBIOTIC [Concomitant]
     Active Substance: PROBIOTICS NOS
     Dates: start: 2015
  2. DELZICOL [Suspect]
     Active Substance: MESALAMINE
     Indication: COLITIS ULCERATIVE
     Route: 048
     Dates: end: 201507

REACTIONS (5)
  - Rash [Not Recovered/Not Resolved]
  - Allergy to chemicals [Not Recovered/Not Resolved]
  - Dry skin [Not Recovered/Not Resolved]
  - Anal pruritus [Not Recovered/Not Resolved]
  - Skin irritation [Not Recovered/Not Resolved]
